FAERS Safety Report 12725424 (Version 2)
Quarter: 2016Q3

REPORT INFORMATION
  Report Type: Spontaneous
  Country: JP (occurrence: JP)
  Receive Date: 20160908
  Receipt Date: 20160920
  Transmission Date: 20161109
  Serious: Yes (Hospitalization)
  Sender: FDA-Public Use
  Company Number: JP-PFIZER INC-2016416602

PATIENT
  Age: 34 Year
  Sex: Female
  Weight: 44 kg

DRUGS (11)
  1. MAGNESIUM SULFATE. [Concomitant]
     Active Substance: MAGNESIUM SULFATE
     Dosage: 1.6 G/H
     Route: 065
  2. HYDROCORTISONE. [Concomitant]
     Active Substance: HYDROCORTISONE
     Dosage: 600 MG, 1X/DAY
     Route: 065
  3. HEPARIN SODIUM. [Suspect]
     Active Substance: HEPARIN SODIUM
     Indication: CEREBRAL INFARCTION
     Dosage: 10 KU (10 KU,1 IN 1 D)
     Route: 065
  4. CLOPIDOGREL SULFATE [Suspect]
     Active Substance: CLOPIDOGREL BISULFATE
     Indication: CEREBRAL INFARCTION
     Dosage: 75 MG, 1X/DAY
  5. RITODRINE HYDROCHLORIDE [Suspect]
     Active Substance: RITODRINE HYDROCHLORIDE
     Dosage: 133 UG, 1 MIN
     Route: 065
  6. RITODRINE HYDROCHLORIDE [Suspect]
     Active Substance: RITODRINE HYDROCHLORIDE
     Dosage: 83 UG, 1 MIN
     Route: 065
  7. MAGNESIUM SULFATE. [Concomitant]
     Active Substance: MAGNESIUM SULFATE
     Indication: PREMATURE LABOUR
     Dosage: 0.8 G, 1 HR
     Route: 065
  8. HYDROCORTISONE. [Concomitant]
     Active Substance: HYDROCORTISONE
     Indication: STEVENS-JOHNSON SYNDROME
     Dosage: 1.6 G, 1 HR
  9. ASPIRIN /00002701/ [Suspect]
     Active Substance: ASPIRIN
     Indication: CEREBRAL INFARCTION
     Dosage: 100 MG, 1X/DAY
     Route: 065
  10. RITODRINE HYDROCHLORIDE [Suspect]
     Active Substance: RITODRINE HYDROCHLORIDE
     Indication: PREMATURE LABOUR
     Dosage: UNK
     Route: 065
  11. SLONNON [Suspect]
     Active Substance: ARGATROBAN
     Indication: CEREBRAL INFARCTION
     Dosage: UNK

REACTIONS (2)
  - Stevens-Johnson syndrome [Recovering/Resolving]
  - Pulmonary alveolar haemorrhage [Recovering/Resolving]
